FAERS Safety Report 19109876 (Version 3)
Quarter: 2021Q2

REPORT INFORMATION
  Report Type: Report from Study
  Country: US (occurrence: US)
  Receive Date: 20210409
  Receipt Date: 20210622
  Transmission Date: 20210717
  Serious: Yes (Hospitalization, Other)
  Sender: FDA-Public Use
  Company Number: US-ROCHE-2804897

PATIENT
  Age: 73 Year
  Sex: Female
  Weight: 73.6 kg

DRUGS (10)
  1. OBINUTUZUMAB. [Suspect]
     Active Substance: OBINUTUZUMAB
     Dosage: C1D2
     Route: 042
  2. OBINUTUZUMAB. [Suspect]
     Active Substance: OBINUTUZUMAB
     Dosage: C1D8 + C1D15, C2?6D1
     Route: 042
  3. IBRUTINIB [Suspect]
     Active Substance: IBRUTINIB
     Indication: CHRONIC LYMPHOCYTIC LEUKAEMIA
     Dosage: FOR 15 CYCLES?ON 01/MAR/2021 AND 09/MAR/2021 (3360 MG) RECEIVED LAST DOSE OF IBRUTINIB PRIOR TO ADVE
     Route: 048
     Dates: start: 20201207
  4. VENETOCLAX. [Suspect]
     Active Substance: VENETOCLAX
     Route: 048
  5. VENETOCLAX. [Suspect]
     Active Substance: VENETOCLAX
     Route: 048
  6. OBINUTUZUMAB. [Suspect]
     Active Substance: OBINUTUZUMAB
     Indication: CHRONIC LYMPHOCYTIC LEUKAEMIA
     Dosage: C1D1?ON 01/FEB/2021 AND 02/MAR/2021 (1000 MG) RECEIVED LAST DOSE OF OBINUTUZUMAB PRIOR TO ADVERSE EV
     Route: 042
     Dates: start: 20201207
  7. TYLENOL [Concomitant]
     Active Substance: ACETAMINOPHEN
  8. VENETOCLAX. [Suspect]
     Active Substance: VENETOCLAX
     Indication: CHRONIC LYMPHOCYTIC LEUKAEMIA
     Dosage: ON 01/MAR/2021 RECEIVED MOST RECENT DOSE OF VENETOCLAX PRIOR TO ADVERSE EVENT?TOTAL DOSE ADMINISTERE
     Route: 048
     Dates: start: 20210201
  9. VENETOCLAX. [Suspect]
     Active Substance: VENETOCLAX
     Route: 048
  10. VENETOCLAX. [Suspect]
     Active Substance: VENETOCLAX
     Route: 048

REACTIONS (3)
  - Back pain [Not Recovered/Not Resolved]
  - Spinal fracture [Not Recovered/Not Resolved]
  - Myalgia [Recovered/Resolved]

NARRATIVE: CASE EVENT DATE: 20210302
